FAERS Safety Report 10956109 (Version 2)
Quarter: 2015Q1

REPORT INFORMATION
  Report Type: Spontaneous
  Country: NO (occurrence: None)
  Receive Date: 20150304
  Receipt Date: 20150330
  Transmission Date: 20150721
  Serious: Yes (Hospitalization)
  Sender: FDA-Public Use
  Company Number: GAM-053-15-NO

PATIENT
  Age: 34 Year
  Sex: Male

DRUGS (10)
  1. OCTAGAM IMMUNE GLOBULIN (HUMAN) [Suspect]
     Active Substance: HUMAN IMMUNOGLOBULIN G
     Indication: GRANULOMATOSIS WITH POLYANGIITIS
     Dosage: 45 G (1X 3 / WEEKS)
     Route: 042
     Dates: start: 20150107, end: 20150107
  2. ATORVASTATIN [Concomitant]
     Active Substance: ATORVASTATIN
  3. CETIRIZINE [Concomitant]
     Active Substance: CETIRIZINE HYDROCHLORIDE
  4. CALCIUM CARBONATE AND COLECALCIFEROL [Concomitant]
  5. PNEUMOCOCCUS AND PURIFIED POLYSACCHARIDES ANTIGEN [Concomitant]
  6. SULFAMETHOXAZOLE AND TRIMETHOPRIM [Concomitant]
     Active Substance: SULFAMETHOXAZOLE\TRIMETHOPRIM
  7. FLUTICASONE AND SALMETEROL [Concomitant]
     Active Substance: FLUTICASONE PROPIONATE\SALMETEROL XINAFOATE
  8. SALBUTAMOL [Concomitant]
     Active Substance: ALBUTEROL
  9. HYDROCHLOROTHIAZID AND LOSARTAN [Concomitant]
  10. PREDNISOLONE. [Concomitant]
     Active Substance: PREDNISOLONE

REACTIONS (5)
  - Frequent bowel movements [None]
  - Vaccination site swelling [None]
  - Pulmonary embolism [None]
  - Weight decreased [None]
  - Pyrexia [None]
